FAERS Safety Report 18251449 (Version 1)
Quarter: 2020Q3

REPORT INFORMATION
  Report Type: Report from Study
  Country: PE (occurrence: PE)
  Receive Date: 20200910
  Receipt Date: 20200910
  Transmission Date: 20201103
  Serious: Yes (Hospitalization)
  Sender: FDA-Public Use
  Company Number: PE-EMD SERONO-9183313

PATIENT
  Age: 35 Year
  Sex: Male

DRUGS (1)
  1. REBIF [Suspect]
     Active Substance: INTERFERON BETA-1A
     Indication: MULTIPLE SCLEROSIS
     Route: 058
     Dates: start: 20200609, end: 2020

REACTIONS (11)
  - Listless [Unknown]
  - Treatment noncompliance [Unknown]
  - Speech disorder [Unknown]
  - Hypoaesthesia [Not Recovered/Not Resolved]
  - Amnesia [Not Recovered/Not Resolved]
  - Vision blurred [Not Recovered/Not Resolved]
  - Musculoskeletal stiffness [Not Recovered/Not Resolved]
  - Depression [Not Recovered/Not Resolved]
  - Neuritis [Recovering/Resolving]
  - Discomfort [Unknown]
  - Headache [Unknown]

NARRATIVE: CASE EVENT DATE: 2020
